FAERS Safety Report 6940444-7 (Version None)
Quarter: 2010Q3

REPORT INFORMATION
  Report Type: 
  Country: None (occurrence: None)
  Receive Date: 20100825
  Receipt Date: 20100813
  Transmission Date: 20110219
  Serious: Yes (Hospitalization)
  Sender: FDA-Public Use
  Company Number: PHHY2010AU51503

PATIENT
  Sex: Female

DRUGS (5)
  1. CLOZARIL [Suspect]
     Indication: SCHIZOPHRENIA
     Dosage: UNK
     Dates: start: 19971208
  2. CLOZARIL [Suspect]
     Dosage: 600 MG
     Dates: start: 20040101
  3. AMITRIPTYLINE HCL [Concomitant]
     Dosage: 50 MG
  4. SERTRALINE HYDROCHLORIDE [Concomitant]
     Dosage: 100 MG
  5. VASTIN [Concomitant]
     Dosage: 40 MG

REACTIONS (4)
  - ANKLE FRACTURE [None]
  - ANTIPSYCHOTIC DRUG LEVEL INCREASED [None]
  - DISORIENTATION [None]
  - URINARY TRACT INFECTION [None]
